FAERS Safety Report 6290932-4 (Version None)
Quarter: 2009Q3

REPORT INFORMATION
  Report Type: 
  Country: None (occurrence: None)
  Receive Date: 20090730
  Receipt Date: 20090723
  Transmission Date: 20100115
  Serious: Yes (Hospitalization)
  Sender: FDA-Public Use
  Company Number: FR-AVENTIS-200912703FR

PATIENT
  Age: 60 Year
  Sex: Female

DRUGS (3)
  1. BIRODOGYL [Suspect]
     Indication: DENTAL CARE
     Route: 048
     Dates: start: 20090609, end: 20090611
  2. DIANTALVIC [Concomitant]
     Indication: DENTAL CARE
     Route: 048
     Dates: start: 20090609
  3. ELUDRIL                            /00914501/ [Concomitant]
     Indication: DENTAL CARE
     Route: 002
     Dates: start: 20090609

REACTIONS (8)
  - EOSINOPHILIA [None]
  - GRANULOCYTOSIS [None]
  - HYPERHIDROSIS [None]
  - MALAISE [None]
  - PROTEINURIA [None]
  - RASH [None]
  - TOXIC SKIN ERUPTION [None]
  - TRANSAMINASES INCREASED [None]
